FAERS Safety Report 8024081-1 (Version None)
Quarter: 2012Q1

REPORT INFORMATION
  Report Type: 
  Country: None (occurrence: None)
  Receive Date: 20120103
  Receipt Date: 20111219
  Transmission Date: 20120608
  Serious: Yes (Disabling, Other)
  Sender: FDA-Public Use
  Company Number: 1140254

PATIENT
  Age: 67 Year
  Sex: Female
  Weight: 104.55 kg

DRUGS (29)
  1. DEXAMETHASONE SODIUM PHOSPHATE [Suspect]
     Indication: ASPIRATION JOINT
     Dosage: 0.5 CC, NOT REPORTED (UNKNOWN) INTRA-ARTICULAR
     Route: 014
     Dates: start: 20101005
  2. DEXAMETHASONE SODIUM PHOSPHATE [Suspect]
     Indication: ASPIRATION JOINT
     Dosage: 0.5 CC, NOT REPORTED (UNKNOWN) INTRA-ARTICULAR
     Route: 014
     Dates: start: 20100602
  3. DEXAMETHASONE SODIUM PHOSPHATE [Suspect]
     Indication: ASPIRATION JOINT
     Dosage: 0.5 CC, NOT REPORTED (UNKNOWN) INTRA-ARTICULAR
     Route: 014
     Dates: start: 20100715
  4. DEXAMETHASONE SODIUM PHOSPHATE [Suspect]
     Indication: ASPIRATION JOINT
     Dosage: 0.5 CC, NOT REPORTED (UNKNOWN) INTRA-ARTICULAR
     Route: 014
     Dates: start: 20100412
  5. DEXAMETHASONE SODIUM PHOSPHATE [Suspect]
     Indication: ASPIRATION JOINT
     Dosage: 0.5 CC, NOT REPORTED (UNKNOWN) INTRA-ARTICULAR
     Route: 014
     Dates: start: 20100708
  6. SYNTHROID [Concomitant]
  7. DICYCLOMINE [Concomitant]
  8. DYAZIDE [Concomitant]
  9. ASPIRIN [Concomitant]
  10. LIDOCAINE HCL [Suspect]
     Indication: ASPIRATION JOINT
     Dosage: 0.5 CC, NOT REPORTED, UNKNOWN, INTRA-ARTICULAR
     Route: 014
     Dates: start: 20100412
  11. LIDOCAINE HCL [Suspect]
     Indication: ASPIRATION JOINT
     Dosage: 0.5 CC, NOT REPORTED, UNKNOWN, INTRA-ARTICULAR
     Route: 014
     Dates: start: 20100708
  12. LIDOCAINE HCL [Suspect]
     Indication: ASPIRATION JOINT
     Dosage: 0.5 CC, NOT REPORTED, UNKNOWN, INTRA-ARTICULAR
     Route: 014
     Dates: start: 20100715
  13. LIDOCAINE HCL [Suspect]
     Indication: ASPIRATION JOINT
     Dosage: 0.5 CC, NOT REPORTED, UNKNOWN, INTRA-ARTICULAR
     Route: 014
     Dates: start: 20100602
  14. LIDOCAINE HCL [Suspect]
     Indication: ASPIRATION JOINT
     Dosage: 0.5 CC, NOT REPORTED, UNKNOWN, INTRA-ARTICULAR
     Route: 014
     Dates: start: 20101005
  15. (PRIMIDONE) [Concomitant]
  16. MELOXICAM [Concomitant]
  17. TOPAMAX [Concomitant]
  18. DEXAMETHASONE ACETATE [Suspect]
     Indication: ASPIRATION JOINT
     Dosage: 0.5 CC, NOT REPORTED, UNKNOWN, INTRA-ARTICULAR
     Route: 014
     Dates: start: 20100412
  19. DEXAMETHASONE ACETATE [Suspect]
     Indication: ASPIRATION JOINT
     Dosage: 0.5 CC, NOT REPORTED, UNKNOWN, INTRA-ARTICULAR
     Route: 014
     Dates: start: 20100602
  20. DEXAMETHASONE ACETATE [Suspect]
     Indication: ASPIRATION JOINT
     Dosage: 0.5 CC, NOT REPORTED, UNKNOWN, INTRA-ARTICULAR
     Route: 014
     Dates: start: 20100708
  21. DEXAMETHASONE ACETATE [Suspect]
     Indication: ASPIRATION JOINT
     Dosage: 0.5 CC, NOT REPORTED, UNKNOWN, INTRA-ARTICULAR
     Route: 014
     Dates: start: 20100715
  22. DEXAMETHASONE ACETATE [Suspect]
     Indication: ASPIRATION JOINT
     Dosage: 0.5 CC, NOT REPORTED, UNKNOWN, INTRA-ARTICULAR
     Route: 014
     Dates: start: 20101005
  23. FLEXERIL [Concomitant]
  24. BUPIVACAINE HCL [Suspect]
     Indication: ASPIRATION JOINT
     Dosage: 0.5 CC, NOT REPORTED, UNKNOWN, INTRA-ARTICULAR
     Route: 014
     Dates: start: 20100715
  25. BUPIVACAINE HCL [Suspect]
     Indication: ASPIRATION JOINT
     Dosage: 0.5 CC, NOT REPORTED, UNKNOWN, INTRA-ARTICULAR
     Route: 014
     Dates: start: 20101005
  26. BUPIVACAINE HCL [Suspect]
     Indication: ASPIRATION JOINT
     Dosage: 0.5 CC, NOT REPORTED, UNKNOWN, INTRA-ARTICULAR
     Route: 014
     Dates: start: 20100708
  27. BUPIVACAINE HCL [Suspect]
     Indication: ASPIRATION JOINT
     Dosage: 0.5 CC, NOT REPORTED, UNKNOWN, INTRA-ARTICULAR
     Route: 014
     Dates: start: 20100412
  28. BUPIVACAINE HCL [Suspect]
     Indication: ASPIRATION JOINT
     Dosage: 0.5 CC, NOT REPORTED, UNKNOWN, INTRA-ARTICULAR
     Route: 014
     Dates: start: 20100602
  29. EFFEXOR [Concomitant]

REACTIONS (17)
  - INJECTION SITE SWELLING [None]
  - ARTHRALGIA [None]
  - ABSCESS LIMB [None]
  - OEDEMA PERIPHERAL [None]
  - INJECTION SITE WARMTH [None]
  - DIARRHOEA [None]
  - INJECTION SITE ULCER [None]
  - WRONG TECHNIQUE IN DRUG USAGE PROCESS [None]
  - IMPAIRED HEALING [None]
  - PAIN IN EXTREMITY [None]
  - POST PROCEDURAL COMPLICATION [None]
  - BACTERIAL TEST POSITIVE [None]
  - INFECTION [None]
  - PROCEDURAL PAIN [None]
  - INJECTION SITE ERYTHEMA [None]
  - CELLULITIS [None]
  - INJECTION SITE PAIN [None]
